FAERS Safety Report 9406251 (Version 2)
Quarter: 2013Q3

REPORT INFORMATION
  Report Type: Spontaneous
  Country: CN (occurrence: CN)
  Receive Date: 20130717
  Receipt Date: 20130812
  Transmission Date: 20140515
  Serious: Yes (Other)
  Sender: FDA-Public Use
  Company Number: CN-GILEAD-2013-0079209

PATIENT
  Age: 23 Year
  Sex: Male

DRUGS (2)
  1. HEPSERA [Suspect]
     Indication: HEPATITIS B
     Dosage: 1TAB PER DAY
     Route: 048
     Dates: start: 201210
  2. HEPTODIN [Suspect]
     Indication: HEPATITIS B
     Dosage: 1TAB PER DAY
     Route: 048
     Dates: start: 20120308

REACTIONS (2)
  - Drug ineffective [Unknown]
  - Hepatitis B DNA increased [Unknown]
